FAERS Safety Report 15747699 (Version 1)
Quarter: 2018Q4

REPORT INFORMATION
  Report Type: Spontaneous
  Country: US (occurrence: US)
  Receive Date: 20181221
  Receipt Date: 20181221
  Transmission Date: 20190205
  Serious: Yes (Other)
  Sender: FDA-Public Use
  Company Number: US-DRREDDYS-USA/USA/18/0100652

PATIENT
  Sex: Female

DRUGS (4)
  1. VORINOSTAT [Suspect]
     Active Substance: VORINOSTAT
     Indication: CHOROID PLEXUS CARCINOMA
     Dosage: 21 DAYS
     Route: 048
     Dates: start: 201309, end: 201309
  2. THALIDOMIDE [Suspect]
     Active Substance: THALIDOMIDE
     Indication: CHOROID PLEXUS CARCINOMA
     Dosage: 28 DAYS
     Route: 048
     Dates: start: 201309, end: 201609
  3. SIROLIMUS. [Suspect]
     Active Substance: SIROLIMUS
     Indication: CHOROID PLEXUS CARCINOMA
     Dosage: 28 DAYS
     Route: 048
     Dates: start: 201309, end: 201609
  4. SUNITINIB [Suspect]
     Active Substance: SUNITINIB
     Indication: CHOROID PLEXUS CARCINOMA
     Dosage: 21 DAYS
     Route: 048
     Dates: start: 201309, end: 201609

REACTIONS (2)
  - Neutropenia [Unknown]
  - Thrombocytopenia [Unknown]
